FAERS Safety Report 7878472-X (Version None)
Quarter: 2011Q4

REPORT INFORMATION
  Report Type: 
  Country: None (occurrence: None)
  Receive Date: 20111012
  Receipt Date: 20110708
  Transmission Date: 20120403
  Serious: Yes (Hospitalization)
  Sender: FDA-Public Use
  Company Number: 036928

PATIENT
  Age: 43 Year
  Sex: Male

DRUGS (1)
  1. KEPPRA [Suspect]
     Dosage: (1000 MG, 1000 MG)

REACTIONS (2)
  - CONVULSION [None]
  - TREATMENT NONCOMPLIANCE [None]
